FAERS Safety Report 19307585 (Version 2)
Quarter: 2021Q2

REPORT INFORMATION
  Report Type: Spontaneous
  Country: GB (occurrence: GB)
  Receive Date: 20210526
  Receipt Date: 20210619
  Transmission Date: 20210717
  Serious: Yes (Death, Other)
  Sender: FDA-Public Use
  Company Number: GB-ACCORD-225986

PATIENT
  Age: 6 Year
  Sex: Male

DRUGS (4)
  1. CISPLATIN. [Suspect]
     Active Substance: CISPLATIN
     Indication: CHEMOTHERAPY
     Route: 051
     Dates: start: 20191101, end: 20191216
  2. CYCLOPHOSPHAMIDE/CYCLOPHOSPHAMIDE MONOHYDRATE [Suspect]
     Active Substance: CYCLOPHOSPHAMIDE
     Indication: CHEMOTHERAPY
     Route: 051
     Dates: start: 20191101, end: 20191216
  3. ETOPOSIDE. [Suspect]
     Active Substance: ETOPOSIDE
     Indication: CHEMOTHERAPY
     Route: 051
     Dates: start: 20191101, end: 20191216
  4. VINCRISTINE [Suspect]
     Active Substance: VINCRISTINE
     Indication: CHEMOTHERAPY
     Route: 051
     Dates: start: 20191101, end: 20191216

REACTIONS (16)
  - Haemorrhage intracranial [Fatal]
  - Acute kidney injury [Unknown]
  - Illness [Unknown]
  - Pancytopenia [Unknown]
  - Seizure [Unknown]
  - Vomiting [Unknown]
  - Feeding disorder [Unknown]
  - Neutropenic sepsis [Unknown]
  - Death [Fatal]
  - Diarrhoea [Unknown]
  - Mouth ulceration [Unknown]
  - Prolapse [Unknown]
  - Headache [Unknown]
  - Pain [Unknown]
  - Malignant neoplasm progression [Unknown]
  - Hydrocephalus [Unknown]

NARRATIVE: CASE EVENT DATE: 20191217
